FAERS Safety Report 23870941 (Version 1)
Quarter: 2024Q2

REPORT INFORMATION
  Report Type: Spontaneous
  Country: CN (occurrence: CN)
  Receive Date: 20240518
  Receipt Date: 20240518
  Transmission Date: 20240716
  Serious: Yes (Hospitalization, Other)
  Sender: FDA-Public Use
  Company Number: CN-Accord-424086

PATIENT
  Age: 44 Year
  Sex: Male
  Weight: 64 kg

DRUGS (4)
  1. FLUOROURACIL [Suspect]
     Active Substance: FLUOROURACIL
     Indication: HER2 positive colorectal cancer
     Dosage: 2400 MG/M2 (IV OVER 46-48 HOURS) Q2WEEKS ON DAYS 1, 15 AND 29 OF EACH ?6-WEEK CYCLE
     Route: 042
     Dates: start: 20240403
  2. OXALIPLATIN [Suspect]
     Active Substance: OXALIPLATIN
     Indication: HER2 positive colorectal cancer
     Dosage: Q2WEEKS ON DAYS 1, 15 AND 29 OF EACH 6-WEEK (42 DAY) CYCLE
     Route: 042
     Dates: start: 20240403
  3. BEVACIZUMAB [Suspect]
     Active Substance: BEVACIZUMAB
     Indication: HER2 positive colorectal cancer
     Dosage: Q2WEEKS ON DAYS 1, 15 AND 29 OF EACH 6-WEEK CYCLE
     Route: 042
     Dates: start: 20240403
  4. LEUCOVORIN [Concomitant]
     Active Substance: LEUCOVORIN\LEUCOVORIN CALCIUM
     Indication: HER2 positive colorectal cancer
     Dosage: Q2WEEKS ON DAYS 1,15 AND 29 OF EACH 6-WEEK CYCLE
     Route: 042
     Dates: start: 20240403

REACTIONS (1)
  - Dermatitis [Not Recovered/Not Resolved]

NARRATIVE: CASE EVENT DATE: 20240418
